FAERS Safety Report 12495235 (Version 1)
Quarter: 2016Q2

REPORT INFORMATION
  Report Type: Spontaneous
  Country: US (occurrence: US)
  Receive Date: 20160624
  Receipt Date: 20160624
  Transmission Date: 20160815
  Serious: No
  Sender: FDA-Public Use
  Company Number: US-PFIZER INC-2016286859

PATIENT
  Age: 59 Year
  Sex: Female

DRUGS (1)
  1. SUTENT [Suspect]
     Active Substance: SUNITINIB MALATE
     Indication: RENAL CANCER
     Dosage: UNK
     Dates: start: 201502, end: 201605

REACTIONS (4)
  - Dyspepsia [Unknown]
  - Blood potassium abnormal [Unknown]
  - Nausea [Unknown]
  - Dysgeusia [Unknown]
